FAERS Safety Report 10577213 (Version 3)
Quarter: 2014Q4

REPORT INFORMATION
  Report Type: Spontaneous
  Country: IT (occurrence: IT)
  Receive Date: 20141111
  Receipt Date: 20141205
  Transmission Date: 20150529
  Serious: Yes (Other)
  Sender: FDA-Public Use
  Company Number: IT-PFIZER INC-2014305841

PATIENT
  Age: 54 Year
  Sex: Female

DRUGS (1)
  1. TOTALIP [Suspect]
     Active Substance: ATORVASTATIN
     Indication: HYPERCHOLESTEROLAEMIA
     Dosage: 20 MG, DAILY
     Dates: start: 20140730, end: 20140820

REACTIONS (3)
  - Myalgia [Recovered/Resolved]
  - Neutropenia [Recovered/Resolved]
  - Blood creatine phosphokinase abnormal [Recovered/Resolved]

NARRATIVE: CASE EVENT DATE: 20140820
